FAERS Safety Report 4818434-X (Version None)
Quarter: 2005Q4

REPORT INFORMATION
  Report Type: 
  Country: None (occurrence: None)
  Receive Date: 20051031
  Receipt Date: 20051019
  Transmission Date: 20060501
  Serious: Yes (Death, Hospitalization, Other)
  Sender: FDA-Public Use
  Company Number: 2005144874

PATIENT
  Age: 67 Year
  Sex: Male
  Weight: 74.8435 kg

DRUGS (6)
  1. CELEBREX [Suspect]
     Indication: ARTHRITIS
     Dosage: 200 MG
  2. PROTONIX [Concomitant]
  3. CLONIDINE [Concomitant]
  4. COREG [Concomitant]
  5. NORVASC [Concomitant]
  6. ALL OTHER THERAPEUTIC PRODUCTS (ALL OTHER THERAPEUTIC PRODUCTS) [Concomitant]

REACTIONS (4)
  - CARDIAC ARREST [None]
  - CARDIAC DISORDER [None]
  - DIFFICULTY IN WALKING [None]
  - MASS [None]
